FAERS Safety Report 8574141-1 (Version None)
Quarter: 2012Q2

REPORT INFORMATION
  Report Type: 
  Country: None (occurrence: None)
  Receive Date: 20120423
  Receipt Date: 20100617
  Transmission Date: 20120825
  Serious: Yes (Other)
  Sender: FDA-Public Use
  Company Number: PHHY2010US30296

PATIENT
  Age: 79 Year
  Sex: Male
  Weight: 69 kg

DRUGS (17)
  1. FINASTERIDE [Concomitant]
  2. CLARITIN [Concomitant]
  3. MEGACE [Concomitant]
  4. OMEPRAZOLE [Concomitant]
  5. AMINOCAPROIC ACID [Concomitant]
  6. NASONEX [Concomitant]
  7. ATENOLOL [Concomitant]
  8. SIMVASTATIN [Concomitant]
  9. VICODIN [Concomitant]
  10. ALBUTEROL [Concomitant]
  11. EXJADE [Suspect]
     Indication: MYELODYSPLASTIC SYNDROME
     Dosage: 1000/1500 MG QD, ORAL ; 1000MG QD, ORAL
     Route: 048
     Dates: start: 20100603, end: 20100611
  12. EXJADE [Suspect]
     Indication: MYELODYSPLASTIC SYNDROME
     Dosage: 1000/1500 MG QD, ORAL ; 1000MG QD, ORAL
     Route: 048
     Dates: start: 20100426, end: 20100516
  13. CALCIUM CARBONATE [Concomitant]
  14. LEVOTHYROXINE SODIUM [Concomitant]
  15. VITAMIN D [Concomitant]
  16. PHENERGAN HCL [Concomitant]
  17. VITAMIN B (NO INGREDIENTS/SUBSTANCES) [Concomitant]

REACTIONS (3)
  - RASH GENERALISED [None]
  - URTICARIA [None]
  - HOT FLUSH [None]
